FAERS Safety Report 7207563-1 (Version None)
Quarter: 2011Q1

REPORT INFORMATION
  Report Type: 
  Country: None (occurrence: None)
  Receive Date: 20110103
  Receipt Date: 20101230
  Transmission Date: 20110831
  Serious: Yes (Death)
  Sender: FDA-Public Use
  Company Number: HR-ABBOTT-10P-216-0694301-00

PATIENT
  Age: 57 Year
  Sex: Male

DRUGS (7)
  1. ZEMPLAR [Suspect]
     Indication: HYPERPARATHYROIDISM SECONDARY
     Dosage: 1 AMPOULE OF 5MCG PER DIALYSIS, 3 X WEEK
     Route: 042
     Dates: start: 20091101
  2. VENOFER [Concomitant]
     Indication: ANAEMIA
  3. CARDIOPIRIN [Concomitant]
     Indication: PRODUCT USED FOR UNKNOWN INDICATION
  4. CARVELOL [Concomitant]
     Indication: PRODUCT USED FOR UNKNOWN INDICATION
  5. MIRCERA [Concomitant]
     Indication: PRODUCT USED FOR UNKNOWN INDICATION
  6. RENAGEL [Concomitant]
     Indication: PRODUCT USED FOR UNKNOWN INDICATION
     Dosage: 4 TABS OF 800MG, 3 IN 1 DAY
     Route: 048
  7. PREDUCTAL MR [Concomitant]
     Indication: PRODUCT USED FOR UNKNOWN INDICATION

REACTIONS (1)
  - DEATH [None]
